FAERS Safety Report 15370519 (Version 2)
Quarter: 2018Q4

REPORT INFORMATION
  Report Type: Spontaneous
  Country: DE (occurrence: DE)
  Receive Date: 20180911
  Receipt Date: 20181004
  Transmission Date: 20190204
  Serious: Yes (Life-Threatening, Hospitalization, Other)
  Sender: FDA-Public Use
  Company Number: DE-TEVA-2018-DE-953541

PATIENT
  Age: 82 Year
  Sex: Female
  Weight: 50 kg

DRUGS (1)
  1. CLINDAMYCIN. [Suspect]
     Active Substance: CLINDAMYCIN
     Indication: DEVICE RELATED INFECTION
     Dosage: 1800 MILLIGRAM DAILY; DAILY DOSE: 1800 MG MILLGRAM(S) EVERY DAYS
     Route: 048

REACTIONS (2)
  - Upper gastrointestinal haemorrhage [Recovered/Resolved]
  - Oesophageal ulcer [Recovered/Resolved]

NARRATIVE: CASE EVENT DATE: 20180501
